FAERS Safety Report 11335346 (Version 1)
Quarter: 2015Q3

REPORT INFORMATION
  Report Type: Report from Study
  Country: US (occurrence: US)
  Receive Date: 20150804
  Receipt Date: 20150804
  Transmission Date: 20151125
  Serious: Yes (Hospitalization)
  Sender: FDA-Public Use
  Company Number: US-BIOGENIDEC-2015BI097211

PATIENT
  Age: 63 Year
  Sex: Female

DRUGS (15)
  1. SYNTHROID [Concomitant]
     Active Substance: LEVOTHYROXINE SODIUM
     Dosage: DOSE UNIT:50
  2. METFORMIN HCL [Concomitant]
     Active Substance: METFORMIN HYDROCHLORIDE
  3. NAPROXEN. [Concomitant]
     Active Substance: NAPROXEN
  4. ZETIA [Concomitant]
     Active Substance: EZETIMIBE
  5. PLEGRIDY [Suspect]
     Active Substance: PEGINTERFERON BETA-1A
     Indication: MULTIPLE SCLEROSIS
     Route: 058
     Dates: start: 201412
  6. TEMAZEPAM. [Concomitant]
     Active Substance: TEMAZEPAM
  7. ATORVASTATIN CALCIUM. [Concomitant]
     Active Substance: ATORVASTATIN CALCIUM
  8. CITALOPRAM [Concomitant]
     Active Substance: CITALOPRAM HYDROBROMIDE
  9. BYETTA 10MCG/0 [Concomitant]
  10. FENOFIBRATE. [Concomitant]
     Active Substance: FENOFIBRATE
  11. GABAPENTIN. [Concomitant]
     Active Substance: GABAPENTIN
  12. LOSARTAN-HYROCHLOROTH 100-12.5MG [Concomitant]
  13. NORVASC [Concomitant]
     Active Substance: AMLODIPINE BESYLATE
  14. ECOTRIN [Concomitant]
     Active Substance: ASPIRIN
  15. NOVOLOG MIX 70-30 [Concomitant]

REACTIONS (1)
  - Orthopaedic procedure [Not Recovered/Not Resolved]

NARRATIVE: CASE EVENT DATE: 20150706
